FAERS Safety Report 5733430-6 (Version None)
Quarter: 2008Q2

REPORT INFORMATION
  Report Type: 
  Country: None (occurrence: None)
  Receive Date: 20080509
  Receipt Date: 20080505
  Transmission Date: 20081010
  Serious: Yes (Disabling)
  Sender: FDA-Public Use
  Company Number: IT-ASTRAZENECA-2008SE02259

PATIENT
  Age: 13573 Day
  Sex: Female

DRUGS (3)
  1. SEROQUEL [Suspect]
     Indication: SCHIZOPHRENIA
     Route: 048
     Dates: start: 20050403, end: 20080303
  2. TOLEP [Concomitant]
     Route: 048
     Dates: start: 20070303, end: 20080303
  3. DEPAKOTE [Concomitant]
     Dates: start: 20070303, end: 20080303

REACTIONS (4)
  - NEUROLEPTIC MALIGNANT SYNDROME [None]
  - RENAL FAILURE [None]
  - RESPIRATORY DISTRESS [None]
  - RHABDOMYOLYSIS [None]
